FAERS Safety Report 7461402-2 (Version None)
Quarter: 2011Q2

REPORT INFORMATION
  Report Type: 
  Country: None (occurrence: None)
  Receive Date: 20110428
  Receipt Date: 20100910
  Transmission Date: 20111010
  Serious: Yes (Other)
  Sender: FDA-Public Use
  Company Number: 2010GW000730

PATIENT
  Age: 66 Year
  Sex: Female

DRUGS (6)
  1. LORAZEPAM [Concomitant]
  2. ALDARA [Suspect]
     Indication: BASAL CELL CARCINOMA
     Dosage: 5 PCT;QOD;TOP ; 5 PCT;5XW;TOP
     Route: 061
  3. ALDARA [Suspect]
     Indication: ACTINIC KERATOSIS
     Dosage: 5 PCT;QOD;TOP ; 5 PCT;5XW;TOP
     Route: 061
  4. ESCITALOPRAM [Concomitant]
  5. AMILORIDE HCL AND HYDROCHLOROTHIAZIDE [Concomitant]
  6. DEXIBUPROFEN [Concomitant]

REACTIONS (10)
  - PRURITUS [None]
  - SKIN EROSION [None]
  - APPLICATION SITE EROSION [None]
  - APPLICATION SITE SCAB [None]
  - APPLICATION SITE OEDEMA [None]
  - URTICARIA [None]
  - APPLICATION SITE ERYTHEMA [None]
  - CHILLS [None]
  - DISCOMFORT [None]
  - ERYTHEMA MULTIFORME [None]
